FAERS Safety Report 8947792 (Version 1)
Quarter: 2012Q4

REPORT INFORMATION
  Report Type: Spontaneous
  Country: DE (occurrence: None)
  Receive Date: 20121127
  Receipt Date: 20121127
  Transmission Date: 20130627
  Serious: Yes (Hospitalization)
  Sender: FDA-Public Use
  Company Number: 2012-20297

PATIENT
  Age: 59 Year
  Sex: Female
  Weight: 59 kg

DRUGS (4)
  1. PANTOPRAZOLE SODIUM [Suspect]
     Indication: GASTRECTOMY
     Route: 048
     Dates: start: 2005, end: 2006
  2. OMEPRAZOLE (UNKNOWN) (OMEPRAZOLE) UNK, UNKUNK [Suspect]
     Dates: start: 2005, end: 2006
  3. PANTOPRAZOLE SODIUM (UNKNOWN)(PANTOPRAZOLE SODIUM) UNK, UNKUNK [Suspect]
     Dates: start: 2005, end: 2006
  4. NEXIUM 	101479302/ (ESOMEPRAZOLE MAGNESIUM) G [Suspect]
     Route: 048
     Dates: start: 2006

REACTIONS (6)
  - Abnormal sensation in eye [None]
  - Asthenia [None]
  - Dizziness [None]
  - Visual impairment [None]
  - Ocular discomfort [None]
  - Visual acuity reduced [None]
